FAERS Safety Report 6447723-0 (Version None)
Quarter: 2009Q4

REPORT INFORMATION
  Report Type: 
  Country: None (occurrence: None)
  Receive Date: 20091120
  Receipt Date: 20091113
  Transmission Date: 20100525
  Serious: Yes (Hospitalization)
  Sender: FDA-Public Use
  Company Number: US-BIOGENIDEC-2009BI037352

PATIENT
  Age: 51 Year
  Sex: Male

DRUGS (1)
  1. TYSABRI [Suspect]
     Indication: MULTIPLE SCLEROSIS
     Route: 042
     Dates: start: 20090121

REACTIONS (5)
  - BLOOD GLUCOSE INCREASED [None]
  - CANDIDIASIS [None]
  - HYPERTENSION [None]
  - HYPOTENSION [None]
  - RED BLOOD CELL COUNT DECREASED [None]
